FAERS Safety Report 6441016-3 (Version None)
Quarter: 2009Q4

REPORT INFORMATION
  Report Type: 
  Country: None (occurrence: None)
  Receive Date: 20091116
  Receipt Date: 20091109
  Transmission Date: 20100525
  Serious: Yes (Other)
  Sender: FDA-Public Use
  Company Number: US-BAYER-200938903NA

PATIENT
  Age: 47 Year
  Sex: Female
  Weight: 57 kg

DRUGS (6)
  1. ANGELIQ [Suspect]
     Indication: MENOPAUSE
     Dosage: 0.5MG DROSPIRENONE AND 1 MG OF ESTRADIOL
     Route: 048
     Dates: start: 20090721
  2. DUONEB [Concomitant]
  3. NEXIUM [Concomitant]
  4. NASONEX [Concomitant]
  5. OLOPATADINE HYDROCHLORIDE [Concomitant]
  6. LISINOPRIL [Concomitant]

REACTIONS (4)
  - BREAST TENDERNESS [None]
  - EMPHYSEMA [None]
  - THYROID NEOPLASM [None]
  - VAGINAL HAEMORRHAGE [None]
